FAERS Safety Report 12772034 (Version 1)
Quarter: 2016Q3

REPORT INFORMATION
  Report Type: Spontaneous
  Country: US (occurrence: US)
  Receive Date: 20160922
  Receipt Date: 20160922
  Transmission Date: 20161109
  Serious: No
  Sender: FDA-Public Use
  Company Number: US-BAYER-2016-183739

PATIENT
  Age: 34 Year
  Sex: Female

DRUGS (2)
  1. GADAVIST [Suspect]
     Active Substance: GADOBUTROL
     Indication: SCAN BRAIN
     Dosage: 5 ML, ONCE
     Dates: start: 20160919, end: 20160919
  2. GADAVIST [Suspect]
     Active Substance: GADOBUTROL
     Indication: ARNOLD-CHIARI MALFORMATION

REACTIONS (1)
  - Rash macular [Recovering/Resolving]

NARRATIVE: CASE EVENT DATE: 20160919
